FAERS Safety Report 16528901 (Version 4)
Quarter: 2019Q3

REPORT INFORMATION
  Report Type: Spontaneous
  Country: US (occurrence: US)
  Receive Date: 20190703
  Receipt Date: 20190827
  Transmission Date: 20191004
  Serious: Yes (Death)
  Sender: FDA-Public Use
  Company Number: US-ACTELION-A-NJ2019-192587

PATIENT
  Sex: Female
  Weight: 42.18 kg

DRUGS (3)
  1. UPTRAVI [Suspect]
     Active Substance: SELEXIPAG
     Indication: PULMONARY ARTERIAL HYPERTENSION
     Dosage: 200 MCG, BID
     Route: 048
     Dates: start: 20190621
  2. OPSUMIT [Suspect]
     Active Substance: MACITENTAN
     Indication: PULMONARY ARTERIAL HYPERTENSION
     Dosage: 10 MG, QD
     Route: 048
     Dates: start: 20180918, end: 20190706
  3. ADCIRCA [Concomitant]
     Active Substance: TADALAFIL

REACTIONS (10)
  - Fall [Unknown]
  - Confusional state [Unknown]
  - Diarrhoea [Unknown]
  - Fatigue [Unknown]
  - Disease complication [Fatal]
  - Asthenia [Unknown]
  - Wheelchair user [Unknown]
  - Headache [Unknown]
  - Thinking abnormal [Unknown]
  - Hospice care [Unknown]
